FAERS Safety Report 11250790 (Version 1)
Quarter: 2015Q3

REPORT INFORMATION
  Report Type: Spontaneous
  Country: US (occurrence: US)
  Receive Date: 20150708
  Receipt Date: 20150708
  Transmission Date: 20151125
  Serious: No
  Sender: FDA-Public Use
  Company Number: US-ELI_LILLY_AND_COMPANY-US201104007463

PATIENT
  Age: 57 Year
  Sex: Female
  Weight: 52.15 kg

DRUGS (5)
  1. PROZAC [Suspect]
     Active Substance: FLUOXETINE HYDROCHLORIDE
     Dosage: 150 MG, QD
     Dates: start: 201101, end: 201104
  2. PROZAC [Suspect]
     Active Substance: FLUOXETINE HYDROCHLORIDE
     Indication: DEPRESSION
     Dosage: 50 MG, QD
     Route: 048
     Dates: start: 201101, end: 201101
  3. ZOLOFT [Concomitant]
     Active Substance: SERTRALINE HYDROCHLORIDE
     Indication: DEPRESSION
     Dosage: 25 MG, QD
     Route: 048
     Dates: start: 201102
  4. PAXIL [Concomitant]
     Active Substance: PAROXETINE HYDROCHLORIDE
     Indication: DEPRESSION
     Dosage: 150 MG, QD
     Route: 048
  5. TOPAMAX [Concomitant]
     Active Substance: TOPIRAMATE
     Indication: MIGRAINE

REACTIONS (6)
  - Asthenia [Unknown]
  - Confusional state [Unknown]
  - Antisocial behaviour [Unknown]
  - Overdose [Recovered/Resolved]
  - Drug ineffective [Unknown]
  - Disturbance in attention [Unknown]

NARRATIVE: CASE EVENT DATE: 201101
